FAERS Safety Report 4715473-4 (Version None)
Quarter: 2005Q3

REPORT INFORMATION
  Report Type: 
  Country: None (occurrence: None)
  Receive Date: 20050713
  Receipt Date: 20050627
  Transmission Date: 20060218
  Serious: Yes (Hospitalization)
  Sender: FDA-Public Use
  Company Number: 2005BI005378

PATIENT
  Sex: Male

DRUGS (12)
  1. AVONEX [Suspect]
     Indication: PROGRESSIVE MULTIPLE SCLEROSIS
     Dosage: QW; IM
     Route: 030
     Dates: start: 20030601
  2. NATALIZUMAB [Suspect]
     Indication: PROGRESSIVE MULTIPLE SCLEROSIS
     Dosage: 300 MG;QW; IV
     Route: 042
     Dates: start: 20050118, end: 20050214
  3. BACLOFEN [Concomitant]
  4. NAPROXEN [Concomitant]
  5. DITROPAN XL [Concomitant]
  6. PROVIGIL [Concomitant]
  7. ZOLOFT [Concomitant]
  8. MOTRIN [Concomitant]
  9. CLONAZEPAM [Concomitant]
  10. DETROL LA [Concomitant]
  11. TYLENOL [Concomitant]
  12. LEXAPRO [Concomitant]

REACTIONS (7)
  - ASTHENIA [None]
  - DEMYELINATION [None]
  - DYSKINESIA [None]
  - MUSCLE SPASMS [None]
  - OPTIC NEURITIS [None]
  - RESPIRATORY TRACT INFECTION VIRAL [None]
  - TREMOR [None]
